FAERS Safety Report 17091971 (Version 3)
Quarter: 2019Q4

REPORT INFORMATION
  Report Type: Report from Study
  Country: FR (occurrence: FR)
  Receive Date: 20191129
  Receipt Date: 20191226
  Transmission Date: 20200122
  Serious: Yes (Death)
  Sender: FDA-Public Use
  Company Number: FR-PFIZER INC-2019499788

PATIENT
  Age: 75 Year
  Sex: Female
  Weight: 73 kg

DRUGS (1)
  1. IBRANCE [Suspect]
     Active Substance: PALBOCICLIB
     Indication: BREAST CANCER
     Dosage: 125 MG, DAILY
     Dates: start: 20191014, end: 20191107

REACTIONS (6)
  - Pneumonia [Fatal]
  - Neutropenia [Recovered/Resolved]
  - Pyrexia [Not Recovered/Not Resolved]
  - Pleural effusion [Fatal]
  - Cough [Recovered/Resolved]
  - Fatigue [Not Recovered/Not Resolved]

NARRATIVE: CASE EVENT DATE: 20191023
